FAERS Safety Report 5397021-1 (Version None)
Quarter: 2007Q3

REPORT INFORMATION
  Report Type: 
  Country: None (occurrence: None)
  Receive Date: 20070725
  Receipt Date: 20070712
  Transmission Date: 20080115
  Serious: No
  Sender: FDA-Public Use
  Company Number: US-SHR-US-2006-033756

PATIENT
  Age: 58 Year
  Sex: Female
  Weight: 68.027 kg

DRUGS (9)
  1. BETASERON [Suspect]
     Indication: RELAPSING-REMITTING MULTIPLE SCLEROSIS
     Route: 058
     Dates: start: 19930101, end: 19930101
  2. SYNTHROID [Concomitant]
     Dosage: .75 MG/D, UNK
  3. ZYRTEC [Concomitant]
     Dosage: 10 MG/D, UNK
  4. PROPRANOLOL [Concomitant]
     Dosage: 10 MG, 2X/DAY
  5. DOVONEX [Concomitant]
     Indication: PSORIASIS
     Route: 061
  6. KENALOG [Concomitant]
     Indication: PSORIASIS
     Route: 061
  7. NTG SL [Concomitant]
     Dosage: UNK, AS REQ'D
  8. VITAMIN B-12 [Concomitant]
     Dosage: 1 ML, 1X/MONTH
  9. BACLOFEN [Concomitant]
     Dosage: 10 MG/D, UNK

REACTIONS (4)
  - BACTERIAL INFECTION [None]
  - DRUG HYPERSENSITIVITY [None]
  - IMPAIRED HEALING [None]
  - INJECTION SITE INFECTION [None]
